FAERS Safety Report 7531091-7 (Version None)
Quarter: 2011Q2

REPORT INFORMATION
  Report Type: 
  Country: None (occurrence: None)
  Receive Date: 20110526
  Receipt Date: 20110520
  Transmission Date: 20111010
  Serious: Yes (Other)
  Sender: FDA-Public Use
  Company Number: 2011SP023474

PATIENT
  Age: 32 Year
  Sex: Female
  Weight: 49 kg

DRUGS (2)
  1. DESOGESTREL AND ETHINYL ESTRADIOL [Suspect]
     Indication: ACNE
     Dosage: PO
     Route: 048
     Dates: start: 20110512
  2. IUD [Concomitant]

REACTIONS (3)
  - SWELLING [None]
  - NAUSEA [None]
  - BREAST MASS [None]
